FAERS Safety Report 20890994 (Version 1)
Quarter: 2022Q2

REPORT INFORMATION
  Report Type: Spontaneous
  Country: CO (occurrence: CO)
  Receive Date: 20220530
  Receipt Date: 20220530
  Transmission Date: 20220721
  Serious: Yes (Other)
  Sender: FDA-Public Use
  Company Number: CO-002147023-NVSC2022CO119510

PATIENT
  Age: 77 Year
  Sex: Female

DRUGS (1)
  1. LUCENTIS [Suspect]
     Active Substance: RANIBIZUMAB
     Indication: Diabetic retinal oedema
     Route: 047

REACTIONS (5)
  - Blindness [Unknown]
  - Malaise [Unknown]
  - Photosensitivity reaction [Unknown]
  - Gait disturbance [Unknown]
  - Cognitive disorder [Unknown]
